FAERS Safety Report 4630406-7 (Version None)
Quarter: 2005Q2

REPORT INFORMATION
  Report Type: 
  Country: None (occurrence: None)
  Receive Date: 20050408
  Receipt Date: 20050330
  Transmission Date: 20051028
  Serious: Yes (Other)
  Sender: FDA-Public Use
  Company Number: PHBS2005JP04452

PATIENT
  Age: 3 Year
  Sex: Male

DRUGS (3)
  1. CARBAMAZEPINE [Suspect]
     Indication: FEBRILE CONVULSION
     Dosage: 75 MG/DAY
     Route: 048
  2. CARBAMAZEPINE [Suspect]
     Dosage: 100 MG/DAY
     Route: 048
  3. CARBAMAZEPINE [Suspect]
     Dosage: 75 MG/DAY
     Route: 048

REACTIONS (1)
  - ONYCHOMADESIS [None]
